FAERS Safety Report 7052336-6 (Version None)
Quarter: 2010Q4

REPORT INFORMATION
  Report Type: 
  Country: None (occurrence: None)
  Receive Date: 20101018
  Receipt Date: 20101018
  Transmission Date: 20110411
  Serious: Yes (Life-Threatening, Hospitalization)
  Sender: FDA-Public Use
  Company Number: None

PATIENT
  Age: 36 Year
  Sex: Female
  Weight: 54.8852 kg

DRUGS (1)
  1. DROSPIRENONE AND ETHINYL ESTRADIOL [Suspect]
     Indication: CONTRACEPTION
     Dosage: 1 PILL DAILY PO
     Route: 048
     Dates: start: 20100414, end: 20100916

REACTIONS (22)
  - ABDOMINAL PAIN [None]
  - ANGER [None]
  - ARTERIOSPASM CORONARY [None]
  - BEDRIDDEN [None]
  - CEREBROVASCULAR SPASM [None]
  - CHEST DISCOMFORT [None]
  - CHEST PAIN [None]
  - DIZZINESS [None]
  - DRUG DOSE OMISSION [None]
  - DYSARTHRIA [None]
  - HYPOAESTHESIA [None]
  - LOSS OF CONSCIOUSNESS [None]
  - MIGRAINE [None]
  - NAUSEA [None]
  - OESOPHAGEAL SPASM [None]
  - PAIN IN EXTREMITY [None]
  - PANIC ATTACK [None]
  - PARAESTHESIA [None]
  - PELVIC PAIN [None]
  - RAYNAUD'S PHENOMENON [None]
  - VAGUS NERVE DISORDER [None]
  - VASOSPASM [None]
